FAERS Safety Report 18771303 (Version 2)
Quarter: 2021Q1

REPORT INFORMATION
  Report Type: Report from Study
  Country: US (occurrence: US)
  Receive Date: 20210122
  Receipt Date: 20210211
  Transmission Date: 20210419
  Serious: No
  Sender: FDA-Public Use
  Company Number: US-TAIHO ONCOLOGY  INC-EU-2021-00007

PATIENT
  Age: 69 Year
  Sex: Male
  Weight: 63.1 kg

DRUGS (7)
  1. DRONABINOL. [Concomitant]
     Active Substance: DRONABINOL
  2. XARELTO [Concomitant]
     Active Substance: RIVAROXABAN
  3. LIDOCAINE? PRILOCAINE [Concomitant]
  4. BENZONATATE. [Concomitant]
     Active Substance: BENZONATATE
  5. ATENOLOL. [Concomitant]
     Active Substance: ATENOLOL
  6. CLINDAMYCIN. [Concomitant]
     Active Substance: CLINDAMYCIN
  7. LONSURF [Suspect]
     Active Substance: TIPIRACIL HYDROCHLORIDE\TRIFLURIDINE
     Indication: COLON CANCER
     Dosage: CYCLE 1
     Route: 048
     Dates: start: 20201202

REACTIONS (8)
  - Disease progression [Unknown]
  - Fatigue [Not Recovered/Not Resolved]
  - Localised infection [Unknown]
  - Weight decreased [Unknown]
  - Body temperature increased [Unknown]
  - Decreased appetite [Not Recovered/Not Resolved]
  - Hypotension [Not Recovered/Not Resolved]
  - Blood bilirubin increased [Unknown]

NARRATIVE: CASE EVENT DATE: 202012
